FAERS Safety Report 24185107 (Version 2)
Quarter: 2025Q2

REPORT INFORMATION
  Report Type: Report from Study
  Country: AR (occurrence: AR)
  Receive Date: 20240807
  Receipt Date: 20250528
  Transmission Date: 20250716
  Serious: Yes (Other)
  Sender: GLAXOSMITHKLINE
  Company Number: AR-GLAXOSMITHKLINE-AR2024AMR097823

PATIENT

DRUGS (2)
  1. BELIMUMAB [Suspect]
     Active Substance: BELIMUMAB
     Indication: Systemic lupus erythematosus
     Dosage: 200 MG, MO
     Route: 058
     Dates: start: 20210604
  2. BELIMUMAB [Suspect]
     Active Substance: BELIMUMAB
     Route: 058
     Dates: start: 20210309

REACTIONS (16)
  - Demyelination [Unknown]
  - Blindness unilateral [Not Recovered/Not Resolved]
  - Nervous system disorder [Unknown]
  - Pain [Unknown]
  - Fatigue [Unknown]
  - General physical health deterioration [Unknown]
  - Coordination abnormal [Not Recovered/Not Resolved]
  - Motor dysfunction [Unknown]
  - Visual impairment [Unknown]
  - Condition aggravated [Unknown]
  - Mobility decreased [Not Recovered/Not Resolved]
  - Fall [Unknown]
  - Stress [Unknown]
  - Malaise [Not Recovered/Not Resolved]
  - Asthenia [Unknown]
  - Off label use [Unknown]

NARRATIVE: CASE EVENT DATE: 20240201
